FAERS Safety Report 13897046 (Version 1)
Quarter: 2017Q3

REPORT INFORMATION
  Report Type: Spontaneous
  Country: US (occurrence: None)
  Receive Date: 20170822
  Receipt Date: 20170822
  Transmission Date: 20171127
  Serious: No
  Sender: FDA-Public Use
  Company Number: None

PATIENT
  Age: 46 Year
  Sex: Female

DRUGS (2)
  1. ATORVASTATIN [Suspect]
     Active Substance: ATORVASTATIN
     Dates: start: 20141003, end: 20150514
  2. METHIMAZOLE. [Suspect]
     Active Substance: METHIMAZOLE
     Dates: start: 20150216, end: 20150514

REACTIONS (5)
  - Hypophagia [None]
  - Fatigue [None]
  - Drug-induced liver injury [None]
  - Metabolic syndrome [None]
  - Jaundice [None]

NARRATIVE: CASE EVENT DATE: 20150511
